FAERS Safety Report 6383231-3 (Version None)
Quarter: 2009Q3

REPORT INFORMATION
  Report Type: 
  Country: None (occurrence: None)
  Receive Date: 20090929
  Receipt Date: 20090914
  Transmission Date: 20100115
  Serious: Yes (Hospitalization)
  Sender: FDA-Public Use
  Company Number: 1-19935349

PATIENT
  Age: 42 Year
  Sex: Male
  Weight: 110.7684 kg

DRUGS (7)
  1. WARFARIN SODIUM [Suspect]
     Dosage: VARYING DOSES, ORAL
     Route: 048
  2. FLUTICASONE/SALMETEROL 500/50 MCG [Concomitant]
  3. ALBUTEROL INHALER 180 MCG [Concomitant]
  4. ASPIRIN [Concomitant]
  5. DIAZEPAM [Concomitant]
  6. ATORVASTATIN CALCIUM [Concomitant]
  7. METOPROLOL SUCCINATE [Concomitant]

REACTIONS (5)
  - INTERNATIONAL NORMALISED RATIO DECREASED [None]
  - INTERNATIONAL NORMALISED RATIO INCREASED [None]
  - MALABSORPTION [None]
  - THERAPEUTIC RESPONSE DECREASED [None]
  - TREATMENT NONCOMPLIANCE [None]
